FAERS Safety Report 9319593 (Version 16)
Quarter: 2016Q4

REPORT INFORMATION
  Report Type: Spontaneous
  Country: US (occurrence: US)
  Receive Date: 20130530
  Receipt Date: 20161010
  Transmission Date: 20170207
  Serious: Yes (Hospitalization, Other)
  Sender: FDA-Public Use
  Company Number: US-GLAXOSMITHKLINE-A1010457A

PATIENT
  Age: 55 Year
  Sex: Female
  Weight: 61 kg

DRUGS (17)
  1. FLOLAN [Suspect]
     Active Substance: EPOPROSTENOL SODIUM
     Indication: PULMONARY ARTERIAL HYPERTENSION
     Dosage: 57.5 DF, CO, 57.5 NG/KG/MIN.
     Route: 065
     Dates: start: 20020517
  2. FLOLAN [Suspect]
     Active Substance: EPOPROSTENOL SODIUM
     Dosage: UNK
     Dates: start: 20020517
  3. FLOLAN [Suspect]
     Active Substance: EPOPROSTENOL SODIUM
     Dosage: 66 DF, CO
  4. FLOLAN [Suspect]
     Active Substance: EPOPROSTENOL SODIUM
     Indication: PULMONARY HYPERTENSION
     Dosage: UNK
     Dates: start: 20020517
  5. FLOLAN [Suspect]
     Active Substance: EPOPROSTENOL SODIUM
     Dosage: 62.5 DF, CO
  6. FLOLAN [Suspect]
     Active Substance: EPOPROSTENOL SODIUM
     Dosage: 66 DF, CO
  7. FLOLAN [Suspect]
     Active Substance: EPOPROSTENOL SODIUM
     Dosage: 78 NG/KG/MIN (CONCENTRATION 90,000 NG/ML, PUMP RATE 74 ML/DAY, VIAL STRENGTH 1.5 MG), CO
     Route: 042
  8. FLOLAN [Suspect]
     Active Substance: EPOPROSTENOL SODIUM
     Dosage: UNK
     Dates: start: 20020517
  9. FLOLAN [Suspect]
     Active Substance: EPOPROSTENOL SODIUM
     Dosage: 62.5 DF, CO
     Route: 065
  10. FLOLAN [Suspect]
     Active Substance: EPOPROSTENOL SODIUM
     Dosage: 66 DF, CO
  11. FLOLAN [Suspect]
     Active Substance: EPOPROSTENOL SODIUM
     Indication: PULMONARY HYPERTENSION
  12. FLOLAN [Suspect]
     Active Substance: EPOPROSTENOL SODIUM
     Dosage: UNK
     Dates: start: 20020517
  13. SILDENAFIL. [Concomitant]
     Active Substance: SILDENAFIL
     Indication: PRODUCT USED FOR UNKNOWN INDICATION
     Dosage: UNK
  14. FLOLAN [Suspect]
     Active Substance: EPOPROSTENOL SODIUM
     Indication: PULMONARY ARTERIAL HYPERTENSION
     Dosage: UNK, CO
     Route: 042
  15. COUMADIN [Concomitant]
     Active Substance: WARFARIN SODIUM
     Indication: PRODUCT USED FOR UNKNOWN INDICATION
     Dosage: UNK
  16. FLOLAN [Suspect]
     Active Substance: EPOPROSTENOL SODIUM
     Dosage: 33 DF, CO
  17. FLOLAN [Suspect]
     Active Substance: EPOPROSTENOL SODIUM
     Dosage: 83 NG/KG/MIN, CONTINUOUSLY
     Dates: start: 20020530

REACTIONS (23)
  - Venous injury [Unknown]
  - Splenic cyst [Unknown]
  - Calcinosis [Unknown]
  - Abdominal pain [Recovered/Resolved]
  - Eye infection [Unknown]
  - Oxygen saturation decreased [Unknown]
  - Malaise [Unknown]
  - Pneumonia [Unknown]
  - Dyspnoea [Unknown]
  - Exposure to mould [Unknown]
  - Pneumothorax [Unknown]
  - Influenza [Unknown]
  - Cataract [Unknown]
  - Device leakage [Recovered/Resolved]
  - Chest pain [Unknown]
  - Hypoxia [Unknown]
  - Nasopharyngitis [Unknown]
  - Ear infection [Unknown]
  - Decreased activity [Unknown]
  - Respiratory failure [Unknown]
  - Blood potassium decreased [Unknown]
  - Ear tube insertion [Unknown]
  - Dysphonia [Recovering/Resolving]

NARRATIVE: CASE EVENT DATE: 20121218
